FAERS Safety Report 8202008-7 (Version None)
Quarter: 2012Q1

REPORT INFORMATION
  Report Type: 
  Country: None (occurrence: None)
  Receive Date: 20120312
  Receipt Date: 20120305
  Transmission Date: 20120608
  Serious: Yes (Hospitalization)
  Sender: FDA-Public Use
  Company Number: TR-MERCK-1203TUR00001

PATIENT
  Age: 59 Year
  Sex: Female

DRUGS (1)
  1. MONTELUKAST [Suspect]
     Indication: RHINITIS ALLERGIC
     Route: 048

REACTIONS (1)
  - ALLERGIC GRANULOMATOUS ANGIITIS [None]
